FAERS Safety Report 5878810-3 (Version None)
Quarter: 2008Q3

REPORT INFORMATION
  Report Type: 
  Country: None (occurrence: None)
  Receive Date: 20080910
  Receipt Date: 20080825
  Transmission Date: 20090109
  Serious: Yes (Other)
  Sender: FDA-Public Use
  Company Number: 2008BI021748

PATIENT
  Age: 43 Year
  Sex: Female
  Weight: 48.9885 kg

DRUGS (1)
  1. TYSABRI [Suspect]
     Indication: MULTIPLE SCLEROSIS
     Dosage: 300 MG; QM; IV
     Route: 042
     Dates: start: 20080530, end: 20080826

REACTIONS (7)
  - FATIGUE [None]
  - FLUSHING [None]
  - JUVENILE MELANOMA BENIGN [None]
  - MALIGNANT MELANOMA STAGE III [None]
  - ORAL HERPES [None]
  - OROPHARYNGEAL DISCOMFORT [None]
  - PYREXIA [None]
